FAERS Safety Report 10082336 (Version 1)
Quarter: 2014Q2

REPORT INFORMATION
  Report Type: Spontaneous
  Country: US (occurrence: None)
  Receive Date: 20140414
  Receipt Date: 20140414
  Transmission Date: 20141212
  Serious: No
  Sender: FDA-Public Use
  Company Number: None

PATIENT
  Age: 55 Year
  Sex: Female
  Weight: 94.35 kg

DRUGS (1)
  1. BELVIQ 10MG EISAI [Suspect]
     Indication: WEIGHT LOSS DIET
     Dosage: 10 MG TWICE DAILY TAKEN BY MOUTH.
     Dates: start: 20140227, end: 20140307

REACTIONS (2)
  - Dizziness [None]
  - Coordination abnormal [None]
